FAERS Safety Report 5961388-3 (Version None)
Quarter: 2008Q4

REPORT INFORMATION
  Report Type: 
  Country: None (occurrence: None)
  Receive Date: 20081121
  Receipt Date: 20081107
  Transmission Date: 20090506
  Serious: Yes (Hospitalization)
  Sender: FDA-Public Use
  Company Number: FR-ELI_LILLY_AND_COMPANY-FR200811001549

PATIENT
  Sex: Male

DRUGS (17)
  1. GEMZAR [Suspect]
     Indication: LUNG NEOPLASM MALIGNANT
     Dosage: UNK, UNKNOWN
     Route: 042
     Dates: start: 20081003
  2. TAZOCILLINE [Concomitant]
     Indication: PNEUMOCYSTIS JIROVECI PNEUMONIA
     Dosage: UNK, UNKNOWN
     Route: 065
     Dates: start: 20080923, end: 20080926
  3. VANCOMYCIN [Concomitant]
     Indication: PNEUMOCYSTIS JIROVECI PNEUMONIA
     Dosage: UNK, UNKNOWN
     Route: 065
     Dates: start: 20080923, end: 20080926
  4. AMOXICILLIN [Concomitant]
     Indication: PNEUMOCYSTIS JIROVECI PNEUMONIA
     Dosage: UNK, UNKNOWN
     Route: 065
     Dates: start: 20080926, end: 20080927
  5. AUGMENTIN '125' [Concomitant]
     Indication: PNEUMOCYSTIS JIROVECI PNEUMONIA
     Dosage: UNK, UNKNOWN
     Route: 065
     Dates: start: 20080927, end: 20081003
  6. BACTRIM [Concomitant]
     Dosage: 1000 MG, UNKNOWN
     Route: 065
     Dates: start: 20081003, end: 20081009
  7. CORTANCYL [Concomitant]
     Dosage: UNK, UNKNOWN
     Route: 065
  8. ATENOLOL [Concomitant]
     Dosage: UNK, UNKNOWN
     Route: 065
  9. PLAVIX [Concomitant]
     Dosage: UNK, UNKNOWN
     Route: 065
     Dates: end: 20081002
  10. COZAAR [Concomitant]
     Dosage: UNK, UNKNOWN
     Route: 065
  11. INNOHEP [Concomitant]
     Dosage: UNK, UNKNOWN
     Route: 065
  12. PROPYL-THIOURACIL [Concomitant]
     Dosage: UNK, UNKNOWN
     Route: 065
  13. INIPOMP [Concomitant]
     Dosage: UNK, UNKNOWN
     Route: 065
     Dates: end: 20081008
  14. LASIX [Concomitant]
     Dosage: UNK, UNKNOWN
     Route: 065
  15. TOPALGIC [Concomitant]
     Dosage: UNK, UNKNOWN
     Route: 065
  16. TAHOR [Concomitant]
     Dosage: UNK, UNKNOWN
     Route: 065
     Dates: end: 20081008
  17. DIGOXINE [Concomitant]
     Indication: CARDIAC FLUTTER
     Dosage: UNK, UNKNOWN
     Route: 065
     Dates: start: 20080923, end: 20081006

REACTIONS (1)
  - CYTOLYTIC HEPATITIS [None]
